FAERS Safety Report 17788258 (Version 2)
Quarter: 2020Q2

REPORT INFORMATION
  Report Type: Spontaneous
  Country: US (occurrence: US)
  Receive Date: 20200515
  Receipt Date: 20200602
  Transmission Date: 20200714
  Serious: Yes (Death)
  Sender: FDA-Public Use
  Company Number: US-BEH-2020117313

PATIENT
  Age: 45 Year
  Sex: Male

DRUGS (2)
  1. HIZENTRA [Suspect]
     Active Substance: HUMAN IMMUNOGLOBULIN G
     Dosage: 8 GRAM, QW
     Route: 058
     Dates: start: 20200114
  2. HIZENTRA [Suspect]
     Active Substance: HUMAN IMMUNOGLOBULIN G
     Indication: SELECTIVE IGG SUBCLASS DEFICIENCY
     Dosage: 10 GRAM, QW
     Route: 058
     Dates: start: 20200114

REACTIONS (3)
  - Renal failure [Fatal]
  - Sepsis [Fatal]
  - Hepatic failure [Fatal]
